FAERS Safety Report 7498483-6 (Version None)
Quarter: 2011Q2

REPORT INFORMATION
  Report Type: 
  Country: None (occurrence: None)
  Receive Date: 20110524
  Receipt Date: 20110519
  Transmission Date: 20111010
  Serious: Yes (Hospitalization, Other)
  Sender: FDA-Public Use
  Company Number: US-AMGEN-USASP2011023333

PATIENT
  Sex: Female

DRUGS (1)
  1. ENBREL [Suspect]
     Indication: RHEUMATOID ARTHRITIS
     Dosage: 50 MG, QWK
     Dates: start: 20050915

REACTIONS (4)
  - CATHETERISATION CARDIAC [None]
  - ELECTROCARDIOGRAM ABNORMAL [None]
  - CORONARY ARTERY DISEASE [None]
  - LATEX ALLERGY [None]
